FAERS Safety Report 15284015 (Version 1)
Quarter: 2018Q4

REPORT INFORMATION
  Report Type: Spontaneous
  Country: NL (occurrence: NL)
  Receive Date: 20180816
  Receipt Date: 20180816
  Transmission Date: 20190204
  Serious: Yes (Other)
  Sender: FDA-Public Use
  Company Number: NL-TEVA-2018-NL-941775

PATIENT
  Age: 80 Year
  Sex: Male
  Weight: 86 kg

DRUGS (18)
  1. DILTIAZEM RET CAPS 200MG [Concomitant]
     Dosage: 200 MILLIGRAM DAILY; 1DD1
  2. LACTULOSESTROOP 670MG/ML [Concomitant]
     Dosage: ZO NODIG
  3. FUROSEMIDE TABL 40MG [Concomitant]
     Dosage: 80 MILLIGRAM DAILY; 1DD2
  4. ACENOCOUMAROL TABL 1MG [Concomitant]
     Route: 065
  5. CUTIVATE CREME 0,5MG/ [Concomitant]
  6. IPRATROPIUM INH 20MCG/DO [Concomitant]
     Dosage: 2-4DD1
  7. ESOMEPRAZOL CAPS MSR 20MG [Concomitant]
     Dosage: 2 MILLIGRAM DAILY; 1DD1
  8. NOVORAPID FLEXPEN 300E=3ML [Concomitant]
     Route: 065
  9. SYMBICORT AER 200/6MCG/DO [Concomitant]
     Dosage: 2DD2
  10. BISACODYL TABL MSR 5MG [Concomitant]
     Dosage: 2DD1
  11. ALFUZOSINE TABL MVA 10MG [Concomitant]
     Dosage: 10 MILLIGRAM DAILY; 1DD1
  12. PERINDOPRIL TERT-BUT T 2MG [Concomitant]
     Dosage: 2 MILLIGRAM DAILY; 1DD1
  13. TEMAZEPAM TABL 20MG [Concomitant]
     Dosage: 20 MILLIGRAM DAILY; 1DD1
  14. TRAMADOL, CAPSULE [Suspect]
     Active Substance: TRAMADOL
     Indication: MYALGIA
     Dosage: 1-3 DAAGS 1 CAPSULE ZO NODIG
     Route: 065
     Dates: start: 20180528, end: 20180606
  15. SPIRONOLACTON TABL 25MG [Concomitant]
     Dosage: 25 MILLIGRAM DAILY; 1DD1
  16. ATORVASTATINE TAB OMH 10MG [Concomitant]
     Dosage: 10 MILLIGRAM DAILY; 1DD1
  17. METOPROLOLSUCC RET T 50MG [Concomitant]
     Dosage: 50 MILLIGRAM DAILY; 1DD1
  18. PROMOCARD DUR TABL MGA 30MG [Concomitant]
     Dosage: 30 MILLIGRAM DAILY; 1DD1

REACTIONS (1)
  - Hypoglycaemia [Recovered/Resolved]

NARRATIVE: CASE EVENT DATE: 20180530
